FAERS Safety Report 11812650 (Version 1)
Quarter: 2015Q4

REPORT INFORMATION
  Report Type: Spontaneous
  Country: BR (occurrence: BR)
  Receive Date: 20151208
  Receipt Date: 20151208
  Transmission Date: 20160305
  Serious: Yes (Hospitalization, Other)
  Sender: FDA-Public Use
  Company Number: BR-AMGEN-BRASP2014039910

PATIENT
  Age: 66 Year
  Sex: Female
  Weight: 78 kg

DRUGS (11)
  1. BESEROL                            /01550501/ [Concomitant]
     Dosage: UNK
  2. SIMVASTATIN. [Concomitant]
     Active Substance: SIMVASTATIN
     Dosage: 1 TABLET OF 40 MG AFTER DINNER (UNSPECIFIED FREQUENCY)
  3. ENBREL [Suspect]
     Active Substance: ETANERCEPT
     Indication: RHEUMATOID ARTHRITIS
     Dosage: 50 MG, ONCE WEEKLY
     Dates: start: 2013
  4. AMLODIPINE [Concomitant]
     Active Substance: AMLODIPINE BESYLATE
     Indication: HYPERTENSION
     Dosage: 10 MG, 1X/DAY
     Dates: start: 2007
  5. NOOTRON [Concomitant]
     Indication: MEMORY IMPAIRMENT
     Dosage: 1 OF 400 MG PER DAY
  6. ENBREL [Suspect]
     Active Substance: ETANERCEPT
     Dosage: UNK
  7. AMLODIPINE BESYLATE. [Concomitant]
     Active Substance: AMLODIPINE BESYLATE
     Indication: HYPERTENSION
     Dosage: 1 OF 10 MG PER DAY, DURING THE EVENING
  8. CILOSTAZOL. [Concomitant]
     Active Substance: CILOSTAZOL
     Dosage: 100 MG, UNK
  9. PURAN [Concomitant]
     Active Substance: LEVOTHYROXINE SODIUM
     Indication: THYROID DISORDER
     Dosage: 150 MG, ONCE DAILY
     Dates: start: 1994
  10. DEFLAZACORT [Concomitant]
     Active Substance: DEFLAZACORT
     Dosage: UNK
  11. DEFLAZACORT TEVA [Concomitant]
     Indication: PAIN
     Dosage: 6 MG, 2X/DAY (MORNING AND EVENING)

REACTIONS (8)
  - Lower respiratory tract inflammation [Not Recovered/Not Resolved]
  - Bedridden [Unknown]
  - Influenza [Not Recovered/Not Resolved]
  - Cerebrovascular accident [Unknown]
  - Pain [Unknown]
  - Catarrh [Not Recovered/Not Resolved]
  - Rhinorrhoea [Not Recovered/Not Resolved]
  - Pneumonia [Not Recovered/Not Resolved]

NARRATIVE: CASE EVENT DATE: 2014
